FAERS Safety Report 6108599-4 (Version None)
Quarter: 2009Q1

REPORT INFORMATION
  Report Type: 
  Country: None (occurrence: None)
  Receive Date: 20090309
  Receipt Date: 20090227
  Transmission Date: 20090719
  Serious: Yes (Hospitalization, Other)
  Sender: FDA-Public Use
  Company Number: US-AMGEN-QUU310641

PATIENT
  Sex: Female

DRUGS (1)
  1. ENBREL [Suspect]
     Indication: RHEUMATOID ARTHRITIS
     Route: 058
     Dates: start: 20021201

REACTIONS (5)
  - GASTROINTESTINAL INJURY [None]
  - HERNIA OBSTRUCTIVE [None]
  - POST PROCEDURAL COMPLICATION [None]
  - POSTOPERATIVE WOUND INFECTION [None]
  - WOUND DEHISCENCE [None]
